FAERS Safety Report 7138840-0 (Version None)
Quarter: 2010Q4

REPORT INFORMATION
  Report Type: 
  Country: None (occurrence: None)
  Receive Date: 20101206
  Receipt Date: 20101129
  Transmission Date: 20110411
  Serious: Yes (Hospitalization)
  Sender: FDA-Public Use
  Company Number: US-JNJCH-2010027434

PATIENT
  Sex: Male

DRUGS (1)
  1. COOL MINT LISTERINE POCKETPAKS [Suspect]
     Indication: PRODUCT USED FOR UNKNOWN INDICATION
     Dosage: TEXT:UNKNOWN
     Route: 048

REACTIONS (2)
  - HOSPITALISATION [None]
  - LABORATORY TEST ABNORMAL [None]
